FAERS Safety Report 4864541-5 (Version None)
Quarter: 2005Q4

REPORT INFORMATION
  Report Type: 
  Country: None (occurrence: None)
  Receive Date: 20051222
  Receipt Date: 20051212
  Transmission Date: 20060501
  Serious: Yes (Other)
  Sender: FDA-Public Use
  Company Number: CA-JNJFOC-20051204614

PATIENT
  Age: 25 Year
  Sex: Male
  Weight: 87 kg

DRUGS (3)
  1. EXTRA STRENGTH TYLENOL [Suspect]
  2. EXTRA STRENGTH TYLENOL [Suspect]
     Indication: DRUG USE FOR UNKNOWN INDICATION
  3. WARFARIN [Concomitant]
     Indication: DRUG USE FOR UNKNOWN INDICATION
     Dosage: SINGLE 20 MG DOSE ADMINISTERED ON DAYS 2 AND 16

REACTIONS (1)
  - HEPATOTOXICITY [None]
